FAERS Safety Report 4802271-6 (Version None)
Quarter: 2005Q4

REPORT INFORMATION
  Report Type: 
  Country: None (occurrence: None)
  Receive Date: 20051012
  Receipt Date: 20050930
  Transmission Date: 20060501
  Serious: Yes (Other)
  Sender: FDA-Public Use
  Company Number: 2005137085

PATIENT
  Age: 78 Year
  Sex: Male

DRUGS (8)
  1. ZITHROMAX [Suspect]
     Indication: DYSPHONIA
     Dosage: 250 MG (250 MG, 1 IN 1 D), ORAL
     Route: 048
     Dates: start: 20050919, end: 20050901
  2. CYCLOSPORINE [Concomitant]
  3. AZATHIOPRINE [Concomitant]
  4. CALCITONIN SALMON [Concomitant]
  5. ACCUPRIL [Concomitant]
  6. ATENOLOL [Concomitant]
  7. NORVASC [Concomitant]
  8. VICODIN [Concomitant]

REACTIONS (2)
  - DEAFNESS [None]
  - EPISTAXIS [None]
